FAERS Safety Report 22660395 (Version 1)
Quarter: 2023Q2

REPORT INFORMATION
  Report Type: Spontaneous
  Country: US (occurrence: US)
  Receive Date: 20230630
  Receipt Date: 20230630
  Transmission Date: 20230722
  Serious: Yes (Hospitalization, Other)
  Sender: FDA-Public Use
  Company Number: US-HIKMA PHARMACEUTICALS USA INC.-US-H14001-23-02214

PATIENT

DRUGS (13)
  1. CYTARABINE [Suspect]
     Active Substance: CYTARABINE
     Indication: Acute lymphocytic leukaemia
     Dosage: UNK
     Route: 042
     Dates: start: 20211214
  2. MERCAPTOPURINE [Suspect]
     Active Substance: MERCAPTOPURINE
     Indication: Acute lymphocytic leukaemia
     Dosage: 50 MILLIGRAM, QD
     Route: 048
     Dates: start: 20211214
  3. METHOTREXATE [Suspect]
     Active Substance: METHOTREXATE
     Indication: Acute lymphocytic leukaemia
     Dosage: 37.5 MILLIGRAM, WEEKLY
     Route: 048
     Dates: start: 20211214, end: 20230530
  4. METHOTREXATE [Suspect]
     Active Substance: METHOTREXATE
     Indication: Acute lymphocytic leukaemia
     Dosage: 15 MILLIGRAM
     Route: 037
     Dates: start: 20220301
  5. METHOTREXATE [Suspect]
     Active Substance: METHOTREXATE
     Dosage: 9335 MILIGRAM
     Route: 042
     Dates: start: 20220301, end: 20220427
  6. LEUCOVORIN [Suspect]
     Active Substance: LEUCOVORIN
     Indication: Acute lymphocytic leukaemia
     Dosage: 28 MILLIGRAM
     Route: 048
     Dates: start: 20220301
  7. DEXAMETHASONE [Suspect]
     Active Substance: DEXAMETHASONE
     Indication: Acute lymphocytic leukaemia
     Dosage: 10 MILLIGRAM, BID
     Route: 048
     Dates: start: 20220524
  8. DOXORUBICIN [Suspect]
     Active Substance: DOXORUBICIN
     Indication: Acute lymphocytic leukaemia
     Dosage: 48 MILLIGRAM
     Route: 042
     Dates: start: 20220524
  9. RUXOLITINIB [Suspect]
     Active Substance: RUXOLITINIB
     Indication: Acute lymphocytic leukaemia
     Dosage: 90 MILLIGRAM, BID
     Route: 048
     Dates: start: 20211214
  10. VINCRISTINE [Suspect]
     Active Substance: VINCRISTINE
     Indication: Acute lymphocytic leukaemia
     Dosage: 2 MILLIGRAM
     Route: 042
     Dates: start: 20211214
  11. CYCLOPHOSPHAMIDE [Suspect]
     Active Substance: CYCLOPHOSPHAMIDE
     Indication: Acute lymphocytic leukaemia
     Dosage: UNK
     Route: 042
     Dates: start: 20211214
  12. PEGASPARGASE [Suspect]
     Active Substance: PEGASPARGASE
     Indication: Acute lymphocytic leukaemia
     Dosage: 3750 INTERNATIONAL UNIT
     Route: 042
     Dates: start: 20211215
  13. THIOGUANINE [Suspect]
     Active Substance: THIOGUANINE
     Indication: Acute lymphocytic leukaemia
     Dosage: 40 MILLIGRAM
     Route: 048
     Dates: start: 20220628

REACTIONS (4)
  - Pyrexia [Not Recovered/Not Resolved]
  - Neutropenia [Not Recovered/Not Resolved]
  - Thrombocytopenia [Not Recovered/Not Resolved]
  - Anaemia [Not Recovered/Not Resolved]

NARRATIVE: CASE EVENT DATE: 20230530
